FAERS Safety Report 5409670-2 (Version None)
Quarter: 2007Q3

REPORT INFORMATION
  Report Type: 
  Country: None (occurrence: None)
  Receive Date: 20070809
  Receipt Date: 20070801
  Transmission Date: 20080115
  Serious: Yes (Hospitalization)
  Sender: FDA-Public Use
  Company Number: US-ELI_LILLY_AND_COMPANY-US200708000546

PATIENT
  Age: 82 Year
  Sex: Female

DRUGS (2)
  1. GEMZAR [Suspect]
     Indication: NON-SMALL CELL LUNG CANCER
     Dosage: 1000 MG/M2, OTHER
     Route: 042
     Dates: start: 20070201, end: 20070301
  2. ALIMTA [Suspect]
     Indication: NON-SMALL CELL LUNG CANCER
     Dates: end: 20070201

REACTIONS (1)
  - NEPHROTIC SYNDROME [None]
